FAERS Safety Report 5225189-6 (Version None)
Quarter: 2007Q1

REPORT INFORMATION
  Report Type: 
  Country: None (occurrence: None)
  Receive Date: 20070131
  Receipt Date: 20070122
  Transmission Date: 20070707
  Serious: Yes (Hospitalization)
  Sender: FDA-Public Use
  Company Number: US-ROCHE-467763

PATIENT
  Age: 13 Year
  Sex: Female
  Weight: 63.5 kg

DRUGS (2)
  1. ACCUTANE [Suspect]
     Indication: DRUG USE FOR UNKNOWN INDICATION
     Route: 048
     Dates: end: 20060815
  2. ACCUTANE [Suspect]
     Dosage: ISOTRETINOIN WAS RESTARTED AFTER ALL EVENTS HAD RESOLVED.
     Route: 048
     Dates: start: 20061016

REACTIONS (4)
  - ADVERSE EVENT [None]
  - DEHYDRATION [None]
  - DIARRHOEA [None]
  - URINARY TRACT INFECTION [None]
